FAERS Safety Report 4506056-X (Version None)
Quarter: 2004Q4

REPORT INFORMATION
  Report Type: 
  Country: None (occurrence: None)
  Receive Date: 20041025
  Receipt Date: 20040609
  Transmission Date: 20050328
  Serious: Yes (Other)
  Sender: FDA-Public Use
  Company Number: US-JNJFOC-20040502882

PATIENT
  Age: 33 Year
  Sex: Female
  Weight: 57 kg

DRUGS (8)
  1. REMICADE [Suspect]
     Indication: CROHN'S DISEASE
     Dosage: INTRAVENOUS
     Route: 042
     Dates: start: 20040102
  2. REMICADE [Suspect]
     Indication: CROHN'S DISEASE
     Dosage: INTRAVENOUS
     Route: 042
     Dates: start: 20040407
  3. ASACOL [Concomitant]
  4. PROTONIX [Concomitant]
  5. IMURAN [Concomitant]
  6. VIOXX [Concomitant]
  7. MVI (MULTIVITAMINS) [Concomitant]
  8. REMICADE [Suspect]
     Dosage: 300 MG, INTRAVENOUS
     Route: 042
     Dates: start: 20040227

REACTIONS (2)
  - BRONCHOSPASM [None]
  - DRUG SPECIFIC ANTIBODY PRESENT [None]
